FAERS Safety Report 8762671 (Version 2)
Quarter: 2013Q1

REPORT INFORMATION
  Report Type: Spontaneous
  Country: US (occurrence: US)
  Receive Date: 20120830
  Receipt Date: 20130111
  Transmission Date: 20140127
  Serious: No
  Sender: FDA-Public Use
  Company Number: US-GILEAD-2012-0060466

PATIENT
  Sex: Female

DRUGS (2)
  1. LETAIRIS [Suspect]
     Indication: PULMONARY HYPERTENSION
     Dosage: 10 MG, UNK
     Route: 048
     Dates: start: 20120731
  2. LETAIRIS [Suspect]
     Indication: CARDIAC FAILURE CONGESTIVE

REACTIONS (2)
  - Fall [Recovered/Resolved]
  - Head injury [Recovered/Resolved]
